FAERS Safety Report 5137758-2 (Version None)
Quarter: 2006Q4

REPORT INFORMATION
  Report Type: 
  Country: None (occurrence: None)
  Receive Date: 20061030
  Receipt Date: 20060104
  Transmission Date: 20070319
  Serious: No
  Sender: FDA-Public Use
  Company Number: US-GLAXOSMITHKLINE-A0587771A

PATIENT
  Age: 62 Year
  Sex: Female

DRUGS (13)
  1. ADVAIR HFA [Suspect]
     Indication: ASTHMA
     Dosage: 1PUFF PER DAY
     Route: 055
  2. THEO-DUR [Concomitant]
     Route: 065
  3. HYDROCHLOROTHIAZIDE [Concomitant]
  4. PAXIL [Concomitant]
  5. LOPRESSOR [Concomitant]
  6. PREMPRO [Concomitant]
  7. DIAZEPAM [Concomitant]
  8. QUININE SULFATE [Concomitant]
  9. SINGULAIR [Concomitant]
  10. CELEBREX [Concomitant]
  11. TRAZODONE HCL [Concomitant]
  12. MYLOCORT [Concomitant]
     Route: 065
  13. PRILOSEC [Concomitant]
     Route: 065

REACTIONS (2)
  - DYSGEUSIA [None]
  - ORAL CANDIDIASIS [None]
